FAERS Safety Report 8353164-1 (Version None)
Quarter: 2012Q2

REPORT INFORMATION
  Report Type: 
  Country: None (occurrence: None)
  Receive Date: 20120511
  Receipt Date: 20120508
  Transmission Date: 20120825
  Serious: Yes (Other)
  Sender: FDA-Public Use
  Company Number: US-PFIZER INC-2012078857

PATIENT
  Sex: Female
  Weight: 117.9 kg

DRUGS (6)
  1. HYDROCODONE BITARTRATE + ACETAMINOPHEN [Concomitant]
     Indication: BONE DISORDER
     Dosage: 7.5/500 MG, 1X/DAY
  2. LYRICA [Suspect]
     Indication: FIBROMYALGIA
     Dosage: 150 MG, 2X/DAY
     Route: 048
  3. DEXLANSOPRAZOLE [Concomitant]
     Indication: HIATUS HERNIA
     Dosage: 60 MG, 1X/DAY
  4. TRIAMTERENE AND HYDROCHLOROTHIAZIDE [Concomitant]
     Dosage: 37.5/25 MG, UNK
  5. METOPROLOL [Concomitant]
     Indication: HYPERTENSION
     Dosage: 100 MG, 1X/DAY
  6. PLAVIX [Concomitant]
     Dosage: UNK

REACTIONS (1)
  - CEREBROVASCULAR ACCIDENT [None]
